FAERS Safety Report 5848777-2 (Version None)
Quarter: 2008Q3

REPORT INFORMATION
  Report Type: 
  Country: None (occurrence: None)
  Receive Date: 20080818
  Receipt Date: 20080728
  Transmission Date: 20090109
  Serious: No
  Sender: FDA-Public Use
  Company Number: US-BOEHRINGER INGELHEIM GMBH, GERMANY-2008-BP-09517BP

PATIENT
  Age: 70 Year
  Sex: Female

DRUGS (7)
  1. ZANTAC 150 [Suspect]
     Indication: GASTROOESOPHAGEAL REFLUX DISEASE
     Route: 048
     Dates: start: 20070101, end: 20080725
  2. ZANTAC 150 [Suspect]
     Indication: HIATUS HERNIA
  3. FIORICET [Concomitant]
     Indication: MIGRAINE
  4. ZYRTEC [Concomitant]
  5. BONIVA [Concomitant]
     Indication: OSTEOPOROSIS
     Route: 042
  6. SENNA [Concomitant]
     Indication: CONSTIPATION
     Route: 048
  7. ACIPHEX [Concomitant]
     Route: 048
     Dates: start: 20080726

REACTIONS (20)
  - ABDOMINAL PAIN UPPER [None]
  - AGEUSIA [None]
  - ANOSMIA [None]
  - APTYALISM [None]
  - COUGH [None]
  - DRY MOUTH [None]
  - DRY SKIN [None]
  - EMPHYSEMA [None]
  - GLOSSODYNIA [None]
  - HYPERKERATOSIS [None]
  - HYPOAESTHESIA [None]
  - LUNG NEOPLASM [None]
  - MEMORY IMPAIRMENT [None]
  - MUSCULAR WEAKNESS [None]
  - ORAL PAIN [None]
  - OROPHARYNGEAL PAIN [None]
  - SKIN DISCOMFORT [None]
  - SKIN DISORDER [None]
  - SKIN EXFOLIATION [None]
  - SKIN REACTION [None]
